FAERS Safety Report 4611140-6 (Version None)
Quarter: 2005Q1

REPORT INFORMATION
  Report Type: 
  Country: None (occurrence: None)
  Receive Date: 20050317
  Receipt Date: 20050307
  Transmission Date: 20050727
  Serious: Yes (Death)
  Sender: FDA-Public Use
  Company Number: US-JNJFOC-20050206511

PATIENT
  Age: 63 Year
  Sex: Female
  Weight: 65.32 kg

DRUGS (4)
  1. DURAGESIC-100 [Suspect]
     Indication: DRUG USE FOR UNKNOWN INDICATION
     Route: 062
  2. DIPHENHYDRAMINE HCL [Concomitant]
  3. NICOTINE [Concomitant]
  4. ETHANOL [Concomitant]

REACTIONS (4)
  - CARDIOMEGALY [None]
  - CORONARY ARTERY ATHEROSCLEROSIS [None]
  - DRUG TOXICITY [None]
  - HEPATIC STEATOSIS [None]
